FAERS Safety Report 9330583 (Version 1)
Quarter: 2013Q2

REPORT INFORMATION
  Report Type: Spontaneous
  Country: US (occurrence: US)
  Receive Date: 20130605
  Receipt Date: 20130605
  Transmission Date: 20140414
  Serious: Yes (Death)
  Sender: FDA-Public Use
  Company Number: PHEH2013US012128

PATIENT
  Sex: 0

DRUGS (1)
  1. EXELON PATCH [Suspect]
     Dosage: 9.5 MG (PATCH 10 CM2), DAILY
     Route: 062
     Dates: start: 20130530, end: 20130531

REACTIONS (1)
  - Death [Fatal]
